FAERS Safety Report 8077436-3 (Version None)
Quarter: 2012Q1

REPORT INFORMATION
  Report Type: 
  Country: None (occurrence: None)
  Receive Date: 20120127
  Receipt Date: 20120126
  Transmission Date: 20120608
  Serious: Yes (Other)
  Sender: FDA-Public Use
  Company Number: PHFR2011IE05780

PATIENT
  Sex: Male

DRUGS (5)
  1. CLOZARIL [Suspect]
     Indication: SCHIZOPHRENIA
     Dosage: 375 MG, UNK
     Route: 048
     Dates: start: 20080601
  2. CLOZARIL [Suspect]
     Dosage: UNK
     Route: 048
     Dates: start: 20080616
  3. ESOMEPRAZOLE SODIUM [Concomitant]
     Indication: GASTRITIS
     Dosage: 20 MG, UNK
     Route: 048
  4. EPITER CHRONO [Concomitant]
     Indication: SCHIZOPHRENIA
     Dosage: 300 MG, UNK
     Route: 048
  5. QUETIAPINE [Concomitant]
     Indication: SCHIZOPHRENIA
     Dosage: 350 MG, UNK
     Route: 048

REACTIONS (2)
  - SCROTAL SWELLING [None]
  - EPIDIDYMITIS [None]
